FAERS Safety Report 4293715-X (Version None)
Quarter: 2004Q1

REPORT INFORMATION
  Report Type: 
  Country: None (occurrence: None)
  Receive Date: 20040212
  Receipt Date: 20031125
  Transmission Date: 20041129
  Serious: Yes (Other)
  Sender: FDA-Public Use
  Company Number: US-GLAXOSMITHKLINE-A0441138A

PATIENT
  Age: 51 Year
  Sex: Female
  Weight: 49.1 kg

DRUGS (5)
  1. ALBUTEROL [Suspect]
     Indication: ASTHMA
     Route: 055
     Dates: start: 20030110, end: 20030215
  2. FLOVENT [Suspect]
     Indication: ASTHMA
     Route: 055
     Dates: start: 20030201, end: 20030215
  3. FLOVENT [Suspect]
     Route: 055
     Dates: start: 20030515, end: 20030601
  4. CORTICOSTEROID [Concomitant]
  5. SINGULAIR [Concomitant]
     Indication: ASTHMA
     Dosage: 5MG AT NIGHT
     Route: 048

REACTIONS (1)
  - EXTRAPYRAMIDAL DISORDER [None]
